FAERS Safety Report 5449731-5 (Version None)
Quarter: 2007Q3

REPORT INFORMATION
  Report Type: 
  Country: None (occurrence: None)
  Receive Date: 20070910
  Receipt Date: 20070828
  Transmission Date: 20080115
  Serious: Yes (Hospitalization)
  Sender: FDA-Public Use
  Company Number: 2006P1000123

PATIENT
  Age: 76 Year
  Sex: Female
  Weight: 60 kg

DRUGS (15)
  1. RETEPLASE (RETEPLASE) [Suspect]
     Indication: ACUTE MYOCARDIAL INFARCTION
     Dosage: 5 IU;X1;IV
     Route: 042
     Dates: start: 20050614, end: 20050614
  2. ABCIXIMAB (ABCIXIMAB) [Suspect]
     Indication: ACUTE MYOCARDIAL INFARCTION
     Dosage: 7.5 MG;X1;IV; 156 MG;X1;IV
     Route: 042
     Dates: start: 20050614, end: 20050614
  3. ABCIXIMAB (ABCIXIMAB) [Suspect]
     Indication: ACUTE MYOCARDIAL INFARCTION
     Dosage: 7.5 MG;X1;IV; 156 MG;X1;IV
     Route: 042
     Dates: start: 20050614, end: 20050614
  4. PLACEBO (PLACEBO) [Suspect]
     Indication: ACUTE MYOCARDIAL INFARCTION
     Dosage: 0.25 MG/KG;X1;IV
     Route: 042
     Dates: start: 20050614, end: 20050614
  5. CLOPIDOGREL [Concomitant]
  6. ASPIRIN [Concomitant]
  7. METOPROLOL SUCCINATE [Concomitant]
  8. FLUVASTATIN [Concomitant]
  9. OMEPRAZOLE [Concomitant]
  10. RAMIPRIL [Concomitant]
  11. GABAPENTIN [Concomitant]
  12. ALPRAZOLAM [Concomitant]
  13. CITALOPRAM [Concomitant]
  14. METAMIZOL [Concomitant]
  15. BISTON [Concomitant]

REACTIONS (12)
  - ATRIAL FIBRILLATION [None]
  - DIARRHOEA [None]
  - DYSPNOEA [None]
  - DYSURIA [None]
  - ELECTROCARDIOGRAM ST SEGMENT ELEVATION [None]
  - ELECTROCARDIOGRAM T WAVE INVERSION [None]
  - LUNG CONSOLIDATION [None]
  - ORTHOPNOEA [None]
  - PLEURAL EFFUSION [None]
  - PULMONARY CONGESTION [None]
  - PULMONARY OEDEMA [None]
  - SUPRAVENTRICULAR TACHYCARDIA [None]
